FAERS Safety Report 24204559 (Version 2)
Quarter: 2024Q3

REPORT INFORMATION
  Report Type: Spontaneous
  Country: AU (occurrence: AU)
  Receive Date: 20240813
  Receipt Date: 20240824
  Transmission Date: 20241016
  Serious: Yes (Other)
  Sender: ASCEND
  Company Number: AU-Ascend Therapeutics US, LLC-2160313

PATIENT
  Age: 25 Year
  Sex: Female

DRUGS (3)
  1. ANDROGEL [Suspect]
     Active Substance: TESTOSTERONE
     Indication: Transgender hormonal therapy
     Route: 061
  2. TESTOSTERONE [Suspect]
     Active Substance: TESTOSTERONE
     Route: 061
  3. DULOXETINE [Concomitant]
     Active Substance: DULOXETINE
     Route: 065

REACTIONS (4)
  - Bipolar disorder [Unknown]
  - Product use issue [Unknown]
  - Psychotic disorder [Unknown]
  - Mania [Unknown]
